FAERS Safety Report 6939059-6 (Version None)
Quarter: 2010Q3

REPORT INFORMATION
  Report Type: 
  Country: None (occurrence: None)
  Receive Date: 20100824
  Receipt Date: 20100817
  Transmission Date: 20110219
  Serious: Yes (Hospitalization, Other)
  Sender: FDA-Public Use
  Company Number: US-MERCK-1001USA00080

PATIENT
  Age: 60 Year
  Sex: Male
  Weight: 68 kg

DRUGS (19)
  1. PRIMAXIN [Suspect]
     Indication: PNEUMONIA BACTERIAL
     Route: 042
     Dates: start: 20091231, end: 20100102
  2. PRIMAXIN [Suspect]
     Route: 042
     Dates: start: 20091231, end: 20100102
  3. SOLU-MEDROL [Concomitant]
     Indication: RESPIRATORY DISORDER
     Route: 042
     Dates: start: 20091231
  4. DEPAKOTE [Concomitant]
     Route: 048
  5. OS-CAL D [Concomitant]
     Route: 048
  6. SENOKOT [Concomitant]
     Route: 048
  7. MIRALAX [Concomitant]
     Route: 048
  8. PRILOSEC [Concomitant]
     Route: 048
  9. ALBUTEROL SULFATE [Concomitant]
     Route: 065
  10. PULMICORT [Concomitant]
     Route: 065
  11. ACETAMINOPHEN [Concomitant]
     Route: 065
  12. SODIUM CHLORIDE [Concomitant]
     Route: 042
  13. BISACODYL [Concomitant]
     Route: 065
  14. DUONEB [Concomitant]
     Route: 065
  15. SELSUN [Concomitant]
     Route: 065
  16. NYSTATIN [Concomitant]
     Route: 065
  17. TRIAMCINOLONE [Concomitant]
     Route: 065
  18. REFRESH PM LUBRICANT EYE OINTMENT [Concomitant]
     Route: 047
  19. MOM (MIDECAMYCIN ACETATE) [Concomitant]
     Route: 065

REACTIONS (2)
  - INJECTION SITE OEDEMA [None]
  - INJECTION SITE VESICLES [None]
